FAERS Safety Report 5139039-X (Version None)
Quarter: 2006Q4

REPORT INFORMATION
  Report Type: 
  Country: None (occurrence: None)
  Receive Date: 20061030
  Receipt Date: 20060612
  Transmission Date: 20070319
  Serious: No
  Sender: FDA-Public Use
  Company Number: US-GLAXOSMITHKLINE-A0608632A

PATIENT
  Age: 66 Year
  Sex: Male

DRUGS (6)
  1. ADVAIR HFA [Suspect]
     Indication: COUGH
     Dosage: 1PUFF TWICE PER DAY
     Route: 055
     Dates: start: 20060609
  2. TEGRETOL [Concomitant]
  3. PROLIXIN [Concomitant]
  4. BLOOD PRESSURE MEDICATION [Concomitant]
  5. VITAMINS [Concomitant]
  6. VIAGRA [Concomitant]

REACTIONS (2)
  - COUGH [None]
  - PHARMACEUTICAL PRODUCT COMPLAINT [None]
